FAERS Safety Report 18625834 (Version 1)
Quarter: 2020Q4

REPORT INFORMATION
  Report Type: Spontaneous
  Country: ES (occurrence: ES)
  Receive Date: 20201217
  Receipt Date: 20201217
  Transmission Date: 20210114
  Serious: Yes (Other)
  Sender: FDA-Public Use
  Company Number: ES-AUROBINDO-AUR-APL-2013-06882

PATIENT
  Age: 83 Year
  Sex: Female

DRUGS (1)
  1. RISEDRONATE [Suspect]
     Active Substance: RISEDRONATE SODIUM
     Indication: OSTEOPOROSIS
     Dosage: UNK UNK,UNK,
     Route: 065

REACTIONS (4)
  - Myasthenic syndrome [Recovered/Resolved]
  - Ocular myasthenia [Recovered/Resolved]
  - Eyelid ptosis [Recovered/Resolved]
  - Muscle fatigue [Recovered/Resolved]
